FAERS Safety Report 26061197 (Version 1)
Quarter: 2025Q4

REPORT INFORMATION
  Report Type: Spontaneous
  Country: EU (occurrence: EU)
  Receive Date: 20251118
  Receipt Date: 20251118
  Transmission Date: 20260118
  Serious: Yes (Other)
  Sender: NOVO NORDISK
  Company Number: None

PATIENT
  Age: 77 Year
  Sex: Male
  Weight: 112 kg

DRUGS (3)
  1. WEGOVY [Interacting]
     Active Substance: SEMAGLUTIDE
     Indication: Obesity
     Dosage: 1.7 MG, QW
     Dates: start: 20251009
  2. ACENOCOUMAROL [Interacting]
     Active Substance: ACENOCOUMAROL
     Dosage: UNK(DOSE INCREASED)
     Route: 048
  3. ACENOCOUMAROL [Interacting]
     Active Substance: ACENOCOUMAROL
     Indication: Product used for unknown indication
     Dosage: UNK
     Route: 048

REACTIONS (3)
  - Drug interaction [Not Recovered/Not Resolved]
  - Product substitution issue [Not Recovered/Not Resolved]
  - Therapeutic product effect decreased [Not Recovered/Not Resolved]
